FAERS Safety Report 5394374-5 (Version None)
Quarter: 2007Q3

REPORT INFORMATION
  Report Type: 
  Country: None (occurrence: None)
  Receive Date: 20070723
  Receipt Date: 20070713
  Transmission Date: 20080115
  Serious: Yes (Disabling, Other)
  Sender: FDA-Public Use
  Company Number: US-MERCK-0707USA00372

PATIENT
  Age: 47 Year
  Sex: Female

DRUGS (9)
  1. EMEND [Suspect]
     Indication: PROPHYLAXIS OF NAUSEA AND VOMITING
     Route: 048
     Dates: start: 20070622, end: 20070622
  2. EMEND [Suspect]
     Route: 048
     Dates: start: 20070623, end: 20070624
  3. ALOXI [Suspect]
     Indication: BREAST CANCER
     Route: 042
     Dates: start: 20070622, end: 20070622
  4. ATIVAN [Concomitant]
     Indication: BREAST CANCER
     Route: 048
     Dates: start: 20070622
  5. CYTOXAN [Concomitant]
     Indication: BREAST CANCER
     Route: 042
     Dates: start: 20070622
  6. CYTOXAN [Concomitant]
     Route: 042
     Dates: start: 20070705
  7. DEXAMETHASONE [Concomitant]
     Route: 042
     Dates: start: 20070622
  8. DOXORUBICIN [Concomitant]
     Route: 042
     Dates: start: 20070622, end: 20070622
  9. DOXORUBICIN [Concomitant]
     Route: 042
     Dates: start: 20070705

REACTIONS (8)
  - ABDOMINAL PAIN [None]
  - DIARRHOEA [None]
  - HEADACHE [None]
  - NAUSEA [None]
  - PHARYNGOLARYNGEAL PAIN [None]
  - TONGUE BLISTERING [None]
  - VISION BLURRED [None]
  - VOMITING [None]
